FAERS Safety Report 7468500-8 (Version None)
Quarter: 2011Q2

REPORT INFORMATION
  Report Type: 
  Country: None (occurrence: None)
  Receive Date: 20110509
  Receipt Date: 20110503
  Transmission Date: 20111010
  Serious: Yes (Hospitalization)
  Sender: FDA-Public Use
  Company Number: US-MERCK-0705USA02875

PATIENT
  Age: 51 Year
  Sex: Female
  Weight: 75 kg

DRUGS (9)
  1. FOSAMAX [Suspect]
     Route: 048
     Dates: start: 20000430, end: 20000523
  2. FOSAMAX [Suspect]
     Indication: OSTEOPOROSIS
     Route: 048
     Dates: start: 19990101, end: 20050827
  3. FOSAMAX [Suspect]
     Route: 048
     Dates: start: 20000430, end: 20000523
  4. FOSAMAX PLUS D [Suspect]
     Indication: OSTEOPOROSIS
     Route: 048
     Dates: start: 20040101, end: 20050101
  5. FOSAMAX [Suspect]
     Route: 048
     Dates: end: 20060101
  6. FOSAMAX [Suspect]
     Indication: OSTEOPENIA
     Route: 048
     Dates: start: 19990101, end: 20050827
  7. FOSAMAX PLUS D [Suspect]
     Route: 048
     Dates: start: 20060101
  8. LIPITOR [Suspect]
     Indication: BLOOD CHOLESTEROL INCREASED
     Route: 065
     Dates: start: 19990101, end: 20050101
  9. FOSAMAX [Suspect]
     Route: 048
     Dates: end: 20060101

REACTIONS (36)
  - ACTINIC KERATOSIS [None]
  - LABYRINTHITIS [None]
  - FINGER DEFORMITY [None]
  - DIZZINESS [None]
  - JAW DISORDER [None]
  - GASTROOESOPHAGEAL REFLUX DISEASE [None]
  - EYE DISORDER [None]
  - BONE LOSS [None]
  - BALANCE DISORDER [None]
  - PARAESTHESIA [None]
  - PALPITATIONS [None]
  - HEPATIC ENZYME INCREASED [None]
  - ANXIETY [None]
  - CHEST PAIN [None]
  - BURSITIS [None]
  - ARRHYTHMIA [None]
  - ACTINIC ELASTOSIS [None]
  - HYPOTHYROIDISM [None]
  - HYPOAESTHESIA ORAL [None]
  - HYPERTENSION [None]
  - FISTULA [None]
  - THROAT TIGHTNESS [None]
  - PLANTAR FASCIITIS [None]
  - ORAL FIBROMA [None]
  - EXOSTOSIS [None]
  - BONE PAIN [None]
  - VERTIGO [None]
  - ANGIOEDEMA [None]
  - TOOTH DISORDER [None]
  - ORAL DISORDER [None]
  - PAIN [None]
  - TRISMUS [None]
  - INFECTION [None]
  - WEIGHT INCREASED [None]
  - MUSCLE STRAIN [None]
  - PANIC ATTACK [None]
